FAERS Safety Report 4819594-7 (Version None)
Quarter: 2005Q4

REPORT INFORMATION
  Report Type: 
  Country: None (occurrence: None)
  Receive Date: 20051103
  Receipt Date: 20051019
  Transmission Date: 20060501
  Serious: Yes (Hospitalization)
  Sender: FDA-Public Use
  Company Number: ESWYE074520OCT05

PATIENT
  Age: 14 Year
  Sex: Male
  Weight: 60 kg

DRUGS (4)
  1. ENBREL [Suspect]
     Indication: JUVENILE ARTHRITIS
     Route: 058
     Dates: start: 20041101, end: 20050601
  2. ENBREL [Suspect]
     Route: 058
  3. LEUCOVORIN CALCIUM [Concomitant]
     Route: 048
  4. METHOTREXATE [Concomitant]

REACTIONS (2)
  - EPSTEIN-BARR VIRUS INFECTION [None]
  - MONONUCLEOSIS SYNDROME [None]
